FAERS Safety Report 5910328-1 (Version None)
Quarter: 2008Q4

REPORT INFORMATION
  Report Type: 
  Country: None (occurrence: None)
  Receive Date: 20081007
  Receipt Date: 20071130
  Transmission Date: 20090506
  Serious: Yes (Other)
  Sender: FDA-Public Use
  Company Number: US-ASTRAZENECA-2007UW27408

PATIENT
  Age: 65 Year
  Sex: Female
  Weight: 61.7 kg

DRUGS (1)
  1. ARIMIDEX [Suspect]
     Indication: BREAST CANCER
     Route: 048
     Dates: start: 20050101

REACTIONS (3)
  - ARTHRALGIA [None]
  - DIARRHOEA [None]
  - HOT FLUSH [None]
